FAERS Safety Report 9800431 (Version 1)
Quarter: 2014Q1

REPORT INFORMATION
  Report Type: Spontaneous
  Country: US (occurrence: US)
  Receive Date: 20140107
  Receipt Date: 20140107
  Transmission Date: 20141002
  Serious: No
  Sender: FDA-Public Use
  Company Number: US-009507513-1401USA001538

PATIENT
  Age: 47 Year
  Sex: Male

DRUGS (3)
  1. PEGINTRON [Suspect]
     Indication: HEPATITIS C
     Dosage: 0.5 ML, QW
     Route: 058
     Dates: start: 20100905, end: 20101003
  2. PEGINTRON [Suspect]
     Indication: HEPATITIS C
     Dosage: 0.5 ML, QW
     Route: 058
     Dates: start: 20101003, end: 20110804
  3. REBETOL [Suspect]
     Indication: HEPATITIS C
     Dosage: OTHER: COULD NOT RECALL
     Route: 048
     Dates: start: 20100905, end: 20110804

REACTIONS (3)
  - Hepatitis C virus test positive [Unknown]
  - Weight decreased [Unknown]
  - Decreased appetite [Unknown]
